FAERS Safety Report 7772069-8 (Version None)
Quarter: 2011Q3

REPORT INFORMATION
  Report Type: 
  Country: None (occurrence: None)
  Receive Date: 20110922
  Receipt Date: 20110104
  Transmission Date: 20111222
  Serious: Yes (Hospitalization, Other)
  Sender: FDA-Public Use
  Company Number: US-ASTRAZENECA-2007UW27733

PATIENT
  Age: 44 Year
  Sex: Female
  Weight: 136.3 kg

DRUGS (25)
  1. SEROQUEL [Suspect]
     Route: 048
     Dates: start: 20050221
  2. ABILIFY [Concomitant]
     Dates: start: 20050101
  3. NORVASC [Concomitant]
     Route: 048
     Dates: start: 20060101
  4. ABILIFY [Concomitant]
     Route: 048
     Dates: start: 20061201
  5. DEPAKOTE [Concomitant]
     Route: 065
     Dates: start: 20050221
  6. XENICAL [Concomitant]
     Dates: start: 20030101
  7. LISINOPRIL [Concomitant]
     Route: 048
     Dates: start: 20060101
  8. PROMETHAZINE DM [Concomitant]
     Dates: start: 20081009
  9. LISINOPRIL AND HYDROCHLOROTHIAZIDE [Concomitant]
     Dosage: 10-12.5
     Dates: start: 20050221
  10. SEROQUEL [Suspect]
     Indication: BIPOLAR DISORDER
     Route: 048
     Dates: start: 20021101, end: 20050221
  11. RISPERDAL [Concomitant]
     Indication: BIPOLAR DISORDER
     Dosage: 1- 3 MG
     Dates: start: 20000101, end: 20060525
  12. DIPHENHYDRAMINE HCL [Concomitant]
     Route: 065
     Dates: start: 20041130
  13. LAMISIL [Concomitant]
     Indication: FUNGAL INFECTION
     Route: 048
     Dates: start: 20080124
  14. SEROQUEL [Suspect]
     Dosage: 25-100 MG
     Route: 048
     Dates: start: 20050207, end: 20050304
  15. SEROQUEL [Suspect]
     Route: 048
     Dates: start: 20050221
  16. RISPERDAL [Concomitant]
     Indication: DEPRESSION
     Dosage: 1- 3 MG
     Dates: start: 20000101, end: 20060525
  17. PREDNISONE [Concomitant]
     Dosage: TAPER FROM 60 MG A DAY DOWN TO NOTHING OVER THE NEXT WEEK TO TEN DAYS
     Dates: start: 20060101
  18. SEROQUEL [Suspect]
     Indication: ANXIETY
     Route: 048
     Dates: start: 20021101, end: 20050221
  19. SEROQUEL [Suspect]
     Dosage: 25-100 MG
     Route: 048
     Dates: start: 20050207, end: 20050304
  20. FEXOFENADINE [Concomitant]
     Route: 048
     Dates: start: 20081009
  21. SEROQUEL [Suspect]
     Indication: DEPRESSION
     Route: 048
     Dates: start: 20021101, end: 20050221
  22. SEROQUEL [Suspect]
     Dosage: 25-100 MG
     Route: 048
     Dates: start: 20050207, end: 20050304
  23. SEROQUEL [Suspect]
     Route: 048
     Dates: start: 20050221
  24. LEXAPRO [Concomitant]
     Route: 065
     Dates: start: 20050221
  25. METOPROLOL [Concomitant]
     Route: 048
     Dates: start: 20060101

REACTIONS (7)
  - TYPE 2 DIABETES MELLITUS [None]
  - TYPE 1 DIABETES MELLITUS [None]
  - DIABETIC KETOACIDOSIS [None]
  - DIABETIC COMPLICATION [None]
  - DIABETIC COMA [None]
  - HYPERGLYCAEMIA [None]
  - DIABETES MELLITUS INADEQUATE CONTROL [None]
